FAERS Safety Report 16949754 (Version 1)
Quarter: 2019Q4

REPORT INFORMATION
  Report Type: Spontaneous
  Country: DK (occurrence: DK)
  Receive Date: 20191023
  Receipt Date: 20191023
  Transmission Date: 20200122
  Serious: Yes (Hospitalization)
  Sender: FDA-Public Use
  Company Number: DK-TEVA-2019-DK-1125987

PATIENT
  Age: 24 Year
  Sex: Female

DRUGS (3)
  1. ELOCON [Concomitant]
     Active Substance: MOMETASONE FUROATE
     Indication: ECZEMA
     Dosage: STRENGTH: 0.1%.?DOSE: 1 APPLY DAILY WITH SCALING.
     Route: 003
     Dates: start: 20190826, end: 20190930
  2. ZOVIR [Concomitant]
     Active Substance: ACYCLOVIR
     Indication: ORAL HERPES
     Dosage: STRENGTH: 50 MG/G.?DOSE: 1 APPLY 5 TIMES A DAY FOR 5 DAYS.
     Route: 003
     Dates: start: 20190920, end: 20190925
  3. VALACICLOVIR ^TEVA^ [Suspect]
     Active Substance: VALACYCLOVIR HYDROCHLORIDE
     Indication: ORAL HERPES
     Dosage: 1000 MG 1 DAYS
     Route: 048
     Dates: start: 20190920

REACTIONS (1)
  - Renal colic [Recovered/Resolved]

NARRATIVE: CASE EVENT DATE: 20190921
